FAERS Safety Report 18176366 (Version 1)
Quarter: 2020Q3

REPORT INFORMATION
  Report Type: Spontaneous
  Country: IT (occurrence: IT)
  Receive Date: 20200820
  Receipt Date: 20200820
  Transmission Date: 20201103
  Serious: Yes (Hospitalization)
  Sender: FDA-Public Use
  Company Number: IT-ASTRAZENECA-2020SF02351

PATIENT
  Age: 39 Year
  Sex: Male

DRUGS (3)
  1. LATUDA [Suspect]
     Active Substance: LURASIDONE HYDROCHLORIDE
     Indication: DRUG ABUSE
     Dosage: 5.0DF ONCE/SINGLE ADMINISTRATION
     Route: 048
     Dates: start: 20200630, end: 20200630
  2. LEXOTAN [Suspect]
     Active Substance: BROMAZEPAM
     Indication: DRUG ABUSE
     Dosage: 20.0ML ONCE/SINGLE ADMINISTRATION
     Route: 048
     Dates: start: 20200630, end: 20200630
  3. SEROQUEL [Suspect]
     Active Substance: QUETIAPINE FUMARATE
     Indication: DRUG ABUSE
     Dosage: 30.0DF ONCE/SINGLE ADMINISTRATION
     Route: 048
     Dates: start: 20200630, end: 20200630

REACTIONS (4)
  - Sopor [Recovering/Resolving]
  - Intentional self-injury [Recovering/Resolving]
  - Drug abuse [Recovering/Resolving]
  - Loss of consciousness [Recovering/Resolving]

NARRATIVE: CASE EVENT DATE: 20200630
